FAERS Safety Report 5960305-X (Version None)
Quarter: 2008Q4

REPORT INFORMATION
  Report Type: 
  Country: None (occurrence: None)
  Receive Date: 20081118
  Receipt Date: 20081107
  Transmission Date: 20090506
  Serious: Yes (Other)
  Sender: FDA-Public Use
  Company Number: THQ2008A02209

PATIENT
  Age: 64 Year
  Sex: Male

DRUGS (5)
  1. ZOTON FASTAB (LANSOPRAZOLE) (TABLETS) [Suspect]
     Indication: HIATUS HERNIA
     Dosage: SEE IMAGE
     Route: 048
     Dates: start: 20081021, end: 20081103
  2. ZOTON FASTAB (LANSOPRAZOLE) (TABLETS) [Suspect]
     Indication: HIATUS HERNIA
     Dosage: SEE IMAGE
     Route: 048
     Dates: start: 20021028
  3. ZOTON FASTAB (LANSOPRAZOLE) (TABLETS) [Suspect]
     Indication: HIATUS HERNIA
     Dosage: SEE IMAGE
     Route: 048
     Dates: start: 20081105
  4. OMEPRAZOLE [Concomitant]
  5. CITALOPRAM HYDROBROMIDE [Concomitant]

REACTIONS (16)
  - ABNORMAL FAECES [None]
  - ARTHRALGIA [None]
  - BURNING SENSATION [None]
  - COLITIS [None]
  - DIVERTICULITIS [None]
  - DIZZINESS [None]
  - DRUG WITHDRAWAL SYNDROME [None]
  - DRY MOUTH [None]
  - FATIGUE [None]
  - FORMICATION [None]
  - HYPERHIDROSIS [None]
  - INCORRECT DOSE ADMINISTERED [None]
  - MYALGIA [None]
  - PAIN [None]
  - PARAESTHESIA [None]
  - PROSTATE CANCER [None]
